FAERS Safety Report 23948423 (Version 3)
Quarter: 2024Q3

REPORT INFORMATION
  Report Type: Report from Study
  Country: US (occurrence: US)
  Receive Date: 20240607
  Receipt Date: 20240701
  Transmission Date: 20241017
  Serious: Yes (Other)
  Sender: UCB
  Company Number: US-UCBSA-2024027731

PATIENT
  Age: 14 Year
  Sex: Male
  Weight: 90 kg

DRUGS (19)
  1. FINTEPLA [Suspect]
     Active Substance: FENFLURAMINE
     Indication: Lennox-Gastaut syndrome
     Dosage: UNK
  2. FINTEPLA [Suspect]
     Active Substance: FENFLURAMINE
     Dosage: 5.9 MILLILITER, 2X/DAY (BID)
     Route: 048
  3. FINTEPLA [Suspect]
     Active Substance: FENFLURAMINE
     Dosage: 3 MILLILITER, 2X/DAY (BID)
     Route: 048
     Dates: start: 20240526
  4. FINTEPLA [Suspect]
     Active Substance: FENFLURAMINE
     Dosage: 5.9 MILLILITER, 2X/DAY (BID)
     Route: 048
     Dates: end: 20240627
  5. VIMPAT [Concomitant]
     Active Substance: LACOSAMIDE
     Indication: Product used for unknown indication
     Dosage: 150 MILLIGRAM, 2X/DAY (BID) (TAKE 1 TABLET BY MOUTH IN THE MORNING AND AT BEDTIME)
     Route: 048
     Dates: start: 20240224
  6. VIMPAT [Concomitant]
     Active Substance: LACOSAMIDE
     Dosage: 50 MILLIGRAM, 2X/DAY (BID) (TAKE 50 MG BY MOUTH IN THE MORNING AND AT BEDTIME)
     Route: 048
  7. VIMPAT [Concomitant]
     Active Substance: LACOSAMIDE
     Dosage: 200 MILLIGRAM, 2X/DAY (BID) (TAKE 1 TABLET BY MOUTH IN THE MORNING AND AT BEDTIME)
     Route: 048
     Dates: start: 20240510
  8. KLONOPIN [Concomitant]
     Active Substance: CLONAZEPAM
     Indication: Seizure cluster
     Dosage: 0.5 MILLIGRAM, 3X/DAY (TID) (1 TAB PO AM AND NOON, 2 TABS PM)
     Route: 048
  9. KLONOPIN [Concomitant]
     Active Substance: CLONAZEPAM
     Dosage: 0.5 MILLIGRAM, 2X/DAY (BID) (1 TAB IN AM , 2 TABS AT BED AND ONE PRN SEIZURE CLUSTER)
     Route: 048
     Dates: start: 20240530
  10. KLONOPIN [Concomitant]
     Active Substance: CLONAZEPAM
     Dosage: 0.5 MILLIGRAM, 3X/DAY (TID) (1 TAB PO AM AND NOON, 2 TABS PM)
     Route: 048
     Dates: start: 20240523, end: 20240530
  11. KAPVAY [Concomitant]
     Active Substance: CLONIDINE HYDROCHLORIDE
     Indication: Product used for unknown indication
     Dosage: 0.1 MILLIGRAM, 2X/DAY (BID) (TAKE 2 TABLETS IN THE MORNING AND EVENING, DOSES SHOULD BE 12 HOURS APA
     Dates: start: 20240314
  12. VALTOCO [Concomitant]
     Active Substance: DIAZEPAM
     Indication: Seizure cluster
     Dosage: 15 MILLIGRAM, AS NEEDED (PRN) (SEIZURE MORE THAN 5 MIN) (SPRAY, NON-AEROSOL)
     Route: 045
     Dates: start: 20231002
  13. ALLEGRA [Concomitant]
     Active Substance: FEXOFENADINE HYDROCHLORIDE
     Indication: Product used for unknown indication
     Dosage: 180 MILLIGRAM, 2X/DAY (BID) (TAKE 1 TABLET BY MOUTH IN MORNING AND AT BEDTIME)
     Route: 048
     Dates: start: 20230106
  14. ROBINUL [Concomitant]
     Active Substance: GLYCOPYRROLATE
     Indication: Product used for unknown indication
     Dosage: 1 MILLIGRAM, ONCE DAILY (QD) (TAKE 1 TABLET BY MOUTH IN THE MORNING)
     Route: 048
     Dates: start: 20231002
  15. NIZORAL [Concomitant]
     Active Substance: KETOCONAZOLE
     Indication: Rash
     Dosage: APPLY TOPICALLY IF NEEDED IN THE MORNING AND AT BEDTIME
     Route: 061
     Dates: start: 20230106
  16. BACTROBAN [Concomitant]
     Active Substance: MUPIROCIN CALCIUM
     Indication: Product used for unknown indication
     Dosage: APPLY A SMALL AMOUNT TO TEH AFFECTED AREA BY TOPICAL ROUTE TWICE DAILY, MIX WITH TRIACINOLONE
     Route: 061
     Dates: start: 20230818
  17. FYCOMPA [Concomitant]
     Active Substance: PERAMPANEL
     Indication: Product used for unknown indication
     Dosage: 6 MILLIGRAM, ONCE DAILY (QD) (TAKE 1 TABLET BY MOUTH AT BEDTIME)
     Route: 048
     Dates: start: 20240314
  18. DESYREL [Concomitant]
     Active Substance: TRAZODONE HYDROCHLORIDE
     Indication: Product used for unknown indication
     Dosage: 100 MILLIGRAM, ONCE DAILY (QD) (TAKE 1 TABLET BY MOUTH AT BEDTIME)
     Route: 048
     Dates: start: 20231002
  19. KENALOG [Concomitant]
     Active Substance: TRIAMCINOLONE ACETONIDE
     Indication: Product used for unknown indication
     Dosage: UNK
     Dates: start: 20230818

REACTIONS (3)
  - Seizure [Not Recovered/Not Resolved]
  - Fall [Unknown]
  - Drug ineffective [Unknown]

NARRATIVE: CASE EVENT DATE: 20240523
